FAERS Safety Report 7018010-7 (Version None)
Quarter: 2010Q3

REPORT INFORMATION
  Report Type: 
  Country: None (occurrence: None)
  Receive Date: 20100928
  Receipt Date: 20100916
  Transmission Date: 20110219
  Serious: Yes (Hospitalization)
  Sender: FDA-Public Use
  Company Number: PHHY2010IL62080

PATIENT
  Sex: Female
  Weight: 62 kg

DRUGS (4)
  1. ACLASTA [Suspect]
     Indication: OSTEOPOROSIS POSTMENOPAUSAL
     Dosage: 5 MG, ONCE YEARLY
     Dates: start: 20100913
  2. VITACAL [Concomitant]
     Indication: OSTEOPOROSIS
     Dosage: 600 MG
     Dates: start: 20070101
  3. VITAMIN D [Concomitant]
     Indication: OSTEOPOROSIS
     Dosage: 2000 IU, DAILY
     Dates: start: 20080101
  4. DERALIN [Concomitant]
     Indication: SUPRAVENTRICULAR TACHYCARDIA
     Dosage: 20 MG
     Route: 048
     Dates: start: 20050101

REACTIONS (1)
  - IRIDOCYCLITIS [None]
